FAERS Safety Report 13489442 (Version 3)
Quarter: 2017Q4

REPORT INFORMATION
  Report Type: Report from Study
  Country: GB (occurrence: GB)
  Receive Date: 20170427
  Receipt Date: 20171103
  Transmission Date: 20180320
  Serious: Yes (Death, Hospitalization, Other)
  Sender: FDA-Public Use
  Company Number: GB-AMGEN-GBRSL2017061767

PATIENT
  Age: 81 Year
  Sex: Male

DRUGS (1)
  1. ARANESP [Suspect]
     Active Substance: DARBEPOETIN ALFA
     Indication: PRODUCT USED FOR UNKNOWN INDICATION
     Dosage: 50 MUG, UNK
     Route: 065

REACTIONS (3)
  - Death [Fatal]
  - Syncope [Unknown]
  - Arteriovenous fistula operation [Unknown]

NARRATIVE: CASE EVENT DATE: 20170502
